FAERS Safety Report 13028741 (Version 2)
Quarter: 2016Q4

REPORT INFORMATION
  Report Type: Spontaneous
  Country: US (occurrence: US)
  Receive Date: 20161214
  Receipt Date: 20161223
  Transmission Date: 20170207
  Serious: Yes (Death)
  Sender: FDA-Public Use
  Company Number: US-BAUSCH-BL-2016-031420

PATIENT
  Age: 79 Year
  Sex: Male

DRUGS (1)
  1. XIFAXAN [Suspect]
     Active Substance: RIFAXIMIN
     Indication: HEPATIC CIRRHOSIS
     Route: 048
     Dates: start: 2012, end: 201608

REACTIONS (3)
  - Hepatic cancer [Fatal]
  - Wrong technique in product usage process [Unknown]
  - Dysphagia [Unknown]

NARRATIVE: CASE EVENT DATE: 20160905
